FAERS Safety Report 7148683-X (Version None)
Quarter: 2010Q4

REPORT INFORMATION
  Report Type: 
  Country: None (occurrence: None)
  Receive Date: 20101123
  Receipt Date: 20101116
  Transmission Date: 20110411
  Serious: Yes (Hospitalization)
  Sender: FDA-Public Use
  Company Number: 2010MA004603

PATIENT
  Age: 85 Year
  Sex: Male

DRUGS (5)
  1. FLUOXETINE [Suspect]
     Dosage: 30 MG;QD
  2. DULOXETIME HYDROCHLORIDE [Suspect]
     Dosage: 20 MG;QD
  3. CON MEDS [Concomitant]
  4. ESCITALOPRAM [Concomitant]
  5. PAROXETINE HCL [Concomitant]

REACTIONS (8)
  - ABDOMINAL TENDERNESS [None]
  - MUSCLE CONTRACTIONS INVOLUNTARY [None]
  - MUSCLE RIGIDITY [None]
  - MUSCLE SPASMS [None]
  - MUSCULAR WEAKNESS [None]
  - MUSCULOSKELETAL STIFFNESS [None]
  - MYOCLONUS [None]
  - SEROTONIN SYNDROME [None]
